FAERS Safety Report 6344048-9 (Version None)
Quarter: 2009Q3

REPORT INFORMATION
  Report Type: 
  Country: None (occurrence: None)
  Receive Date: 20090908
  Receipt Date: 20090831
  Transmission Date: 20100115
  Serious: Yes (Other)
  Sender: FDA-Public Use
  Company Number: US-PFIZER INC-2009262438

PATIENT
  Sex: Male

DRUGS (1)
  1. THIOTHIXENE HCL [Suspect]

REACTIONS (2)
  - DRUG INEFFECTIVE [None]
  - HALLUCINATION, AUDITORY [None]
